FAERS Safety Report 9602814 (Version 1)
Quarter: 2013Q4

REPORT INFORMATION
  Report Type: Spontaneous
  Country: FR (occurrence: FR)
  Receive Date: 20131007
  Receipt Date: 20131007
  Transmission Date: 20140711
  Serious: Yes (Life-Threatening, Other)
  Sender: FDA-Public Use
  Company Number: FR-009507513-1309FRA014384

PATIENT
  Age: 55 Year
  Sex: Female

DRUGS (5)
  1. NORSET [Suspect]
     Dosage: 30 DF, ONCE
     Route: 048
     Dates: start: 20130906, end: 20130906
  2. EFFEXOR [Suspect]
     Dosage: 30 DF, ONCE
     Route: 048
     Dates: start: 20130906, end: 20130906
  3. NOCTAMIDE [Suspect]
     Dosage: 14 DF, ONCE
     Route: 048
     Dates: start: 20130906, end: 20130906
  4. DEPAMIDE [Suspect]
     Dosage: 30 DF, ONCE
     Route: 048
     Dates: start: 20130906, end: 20130906
  5. NORDAZEPAM [Suspect]
     Dosage: UNK
     Route: 048

REACTIONS (2)
  - Coma [Recovered/Resolved]
  - Hypoglycaemia [Recovered/Resolved]
